FAERS Safety Report 23178565 (Version 1)
Quarter: 2023Q4

REPORT INFORMATION
  Report Type: Spontaneous
  Country: US (occurrence: US)
  Receive Date: 20231113
  Receipt Date: 20231113
  Transmission Date: 20240110
  Serious: Yes (Death)
  Sender: FDA-Public Use
  Company Number: US-AMGEN-USASP2023199136

PATIENT

DRUGS (7)
  1. PROLIA [Suspect]
     Active Substance: DENOSUMAB
     Indication: Hypercalcaemia of malignancy
     Dosage: 60 MILLIGRAM, Q6MO
     Route: 058
  2. PROLIA [Suspect]
     Active Substance: DENOSUMAB
     Indication: Hypercalcaemia
  3. XGEVA [Suspect]
     Active Substance: DENOSUMAB
     Indication: Hypercalcaemia of malignancy
     Dosage: 120 MILLIGRAM
     Route: 065
  4. XGEVA [Suspect]
     Active Substance: DENOSUMAB
     Indication: Hypercalcaemia
  5. XGEVA [Suspect]
     Active Substance: DENOSUMAB
     Indication: Off label use
  6. CALCITONIN [Concomitant]
     Active Substance: CALCITONIN
  7. FUROSEMIDE [Concomitant]
     Active Substance: FUROSEMIDE
     Dosage: UNK
     Route: 065

REACTIONS (6)
  - Hypercalcaemia of malignancy [Fatal]
  - Hypercalcaemia [Fatal]
  - Drug effective for unapproved indication [Unknown]
  - Off label use [Unknown]
  - Electrolyte imbalance [Unknown]
  - Hypocalcaemia [Unknown]
